FAERS Safety Report 5121120-2 (Version None)
Quarter: 2006Q4

REPORT INFORMATION
  Report Type: 
  Country: None (occurrence: None)
  Receive Date: 20061005
  Receipt Date: 20060919
  Transmission Date: 20070319
  Serious: Yes (Hospitalization)
  Sender: FDA-Public Use
  Company Number: DE-BRISTOL-MYERS SQUIBB COMPANY-13516737

PATIENT
  Age: 80 Year
  Sex: Female
  Weight: 85 kg

DRUGS (4)
  1. IRBESARTAN [Suspect]
     Indication: HYPERTENSION
     Dates: start: 20040929
  2. BLINDED: PLACEBO [Suspect]
     Indication: HYPERTENSION
     Dates: start: 20040929
  3. PHENPROCOUMON [Suspect]
     Indication: PROPHYLAXIS
     Dates: start: 20040929
  4. ASPIRIN [Concomitant]

REACTIONS (1)
  - HAEMORRHAGE [None]
